APPROVED DRUG PRODUCT: PROBENECID AND COLCHICINE
Active Ingredient: COLCHICINE; PROBENECID
Strength: 0.5MG;500MG
Dosage Form/Route: TABLET;ORAL
Application: A040618 | Product #001 | TE Code: AB
Applicant: NOVAST LABORATORIES LTD
Approved: May 13, 2008 | RLD: No | RS: No | Type: RX